FAERS Safety Report 20648721 (Version 2)
Quarter: 2022Q2

REPORT INFORMATION
  Report Type: Spontaneous
  Country: ES (occurrence: ES)
  Receive Date: 20220329
  Receipt Date: 20220405
  Transmission Date: 20220721
  Serious: Yes (Hospitalization)
  Sender: FDA-Public Use
  Company Number: ES-TEVA-2022-ES-2016633

PATIENT
  Age: 74 Year
  Sex: Male

DRUGS (9)
  1. AZITHROMYCIN [Suspect]
     Active Substance: AZITHROMYCIN
     Indication: COVID-19 pneumonia
     Dosage: 500 MG, DAILY
  2. REMDESIVIR [Suspect]
     Active Substance: REMDESIVIR
     Indication: COVID-19 pneumonia
     Dosage: 100 MG, DAILY; FROM SECOND DAY
     Route: 041
  3. REMDESIVIR [Suspect]
     Active Substance: REMDESIVIR
     Dosage: 200 MG, LOADING DOSE ON THE FIRST DAY
     Route: 041
  4. REMDESIVIR [Suspect]
     Active Substance: REMDESIVIR
     Dosage: 100 MG, DAILY; FROM THIRD DAY
     Route: 041
  5. CEFTRIAXONE [Suspect]
     Active Substance: CEFTRIAXONE
     Indication: COVID-19 pneumonia
     Dosage: 2 G, DAILY
  6. TAMSULOSIN [Concomitant]
     Active Substance: TAMSULOSIN
     Indication: Drug therapy
     Dosage: 0.4 MG, DAILY
  7. METHYLPREDNISOLONE [Concomitant]
     Active Substance: METHYLPREDNISOLONE
     Indication: Drug therapy
     Dosage: 125 MG, 1X/DAY (RECEIVED THREE BOLUSES)
     Route: 040
  8. LOSARTAN [Concomitant]
     Active Substance: LOSARTAN
     Indication: Drug therapy
     Dosage: 50 MG, DAILY
     Route: 065
  9. BEMIPARIN [Concomitant]
     Active Substance: BEMIPARIN
     Indication: Drug therapy
     Dosage: 5000 IU, DAILY

REACTIONS (3)
  - Sinus bradycardia [Recovered/Resolved]
  - Drug ineffective for unapproved indication [Unknown]
  - Off label use [Unknown]
